FAERS Safety Report 21612703 (Version 3)
Quarter: 2024Q1

REPORT INFORMATION
  Report Type: Report from Study
  Country: JP (occurrence: JP)
  Receive Date: 20221118
  Receipt Date: 20240222
  Transmission Date: 20240410
  Serious: Yes (Hospitalization, Other)
  Sender: FDA-Public Use
  Company Number: JP-TAKEDA-2022TJP077302

PATIENT
  Age: 48 Year
  Sex: Male
  Weight: 51.4 kg

DRUGS (6)
  1. TEDUGLUTIDE [Suspect]
     Active Substance: TEDUGLUTIDE
     Indication: Short-bowel syndrome
     Dosage: 0.025 MILLIGRAM/KILOGRAM
     Route: 058
     Dates: start: 20220329
  2. TEDUGLUTIDE [Suspect]
     Active Substance: TEDUGLUTIDE
     Indication: Short-bowel syndrome
     Dosage: 0.025 MILLIGRAM/KILOGRAM
     Route: 058
     Dates: start: 20220329
  3. TEDUGLUTIDE [Suspect]
     Active Substance: TEDUGLUTIDE
     Indication: Short-bowel syndrome
     Dosage: 0.025 MILLIGRAM/KILOGRAM
     Route: 058
     Dates: start: 20220329
  4. TEDUGLUTIDE [Suspect]
     Active Substance: TEDUGLUTIDE
     Indication: Short-bowel syndrome
     Dosage: 0.025 MILLIGRAM/KILOGRAM
     Route: 058
     Dates: start: 20220329
  5. PENTASA [Concomitant]
     Active Substance: MESALAMINE
     Dosage: 3000 MILLIGRAM
     Route: 065
  6. IMURAN [Concomitant]
     Active Substance: AZATHIOPRINE
     Dosage: 50 MILLIGRAM
     Route: 065

REACTIONS (1)
  - Device related infection [Recovered/Resolved]

NARRATIVE: CASE EVENT DATE: 20221115
